FAERS Safety Report 12795821 (Version 1)
Quarter: 2016Q3

REPORT INFORMATION
  Report Type: Spontaneous
  Country: US (occurrence: US)
  Receive Date: 20160929
  Receipt Date: 20160929
  Transmission Date: 20161109
  Serious: No
  Sender: FDA-Public Use
  Company Number: US-PFIZER INC-2016451925

PATIENT
  Sex: Male

DRUGS (1)
  1. LYRICA [Suspect]
     Active Substance: PREGABALIN
     Indication: PAIN IN EXTREMITY
     Dosage: UNK

REACTIONS (6)
  - Paraesthesia [Unknown]
  - Arthropathy [Unknown]
  - Arthralgia [Unknown]
  - Condition aggravated [Unknown]
  - Bone disorder [Unknown]
  - Back pain [Unknown]
